FAERS Safety Report 9836196 (Version 5)
Quarter: 2017Q4

REPORT INFORMATION
  Report Type: Spontaneous
  Country: CA (occurrence: CA)
  Receive Date: 20140123
  Receipt Date: 20171125
  Transmission Date: 20180321
  Serious: Yes (Hospitalization, Other)
  Sender: FDA-Public Use
  Company Number: CA-ROCHE-1321426

PATIENT
  Age: 50 Year
  Sex: Male

DRUGS (8)
  1. XOLAIR [Suspect]
     Active Substance: OMALIZUMAB
     Dosage: UNK
     Route: 058
     Dates: start: 20140429
  2. PREDNISONE. [Concomitant]
     Active Substance: PREDNISONE
     Indication: PRODUCT USED FOR UNKNOWN INDICATION
     Route: 065
  3. XOLAIR [Suspect]
     Active Substance: OMALIZUMAB
     Indication: ASTHMA
     Dosage: 300 MG, EVERY FOUR WEEKS
     Route: 058
     Dates: start: 20121204
  4. XOLAIR [Suspect]
     Active Substance: OMALIZUMAB
     Dosage: UNK
     Route: 058
     Dates: start: 20140120
  5. XOLAIR [Suspect]
     Active Substance: OMALIZUMAB
     Dosage: UNK
     Route: 058
     Dates: start: 20131105
  6. XOLAIR [Suspect]
     Active Substance: OMALIZUMAB
     Dosage: UNK
     Route: 058
     Dates: start: 20140327
  7. TAMIFLU [Concomitant]
     Active Substance: OSELTAMIVIR PHOSPHATE
     Indication: PRODUCT USED FOR UNKNOWN INDICATION
     Route: 065
  8. XOLAIR [Suspect]
     Active Substance: OMALIZUMAB
     Dosage: UNK
     Route: 058
     Dates: start: 20131218

REACTIONS (11)
  - Influenza like illness [Unknown]
  - Heart rate increased [Unknown]
  - Back pain [Unknown]
  - Blood pressure increased [Not Recovered/Not Resolved]
  - Abdominal discomfort [Unknown]
  - Lower limb fracture [Unknown]
  - Somnolence [Unknown]
  - Pain [Not Recovered/Not Resolved]
  - Fall [Unknown]
  - Body temperature increased [Unknown]
  - Influenza [Recovered/Resolved]

NARRATIVE: CASE EVENT DATE: 20130125
